FAERS Safety Report 17504390 (Version 1)
Quarter: 2020Q1

REPORT INFORMATION
  Report Type: Spontaneous
  Country: US (occurrence: US)
  Receive Date: 20200305
  Receipt Date: 20200305
  Transmission Date: 20200409
  Serious: Yes (Other)
  Sender: FDA-Public Use
  Company Number: US-STRONGBRIDGE BIOPHARMA-2020-STR-000065

PATIENT
  Sex: Female

DRUGS (1)
  1. KEVEYIS [Suspect]
     Active Substance: DICHLORPHENAMIDE
     Indication: LONG QT SYNDROME
     Dosage: 100 MG, BID
     Route: 048
     Dates: start: 20190412

REACTIONS (3)
  - Dehydration [Unknown]
  - Nephrolithiasis [Unknown]
  - Pain [Unknown]
